FAERS Safety Report 20728590 (Version 1)
Quarter: 2022Q2

REPORT INFORMATION
  Report Type: Spontaneous
  Country: US (occurrence: US)
  Receive Date: 20220420
  Receipt Date: 20220420
  Transmission Date: 20220721
  Serious: No
  Sender: FDA-Public Use
  Company Number: US-drreddys-SPO/USA/22/0148796

PATIENT
  Age: 21 Year
  Sex: Female

DRUGS (1)
  1. ACCUTANE [Suspect]
     Active Substance: ISOTRETINOIN
     Indication: Product used for unknown indication
     Dosage: RMA ISSUE DATE: 20/SEPTEMBER/2021 10:38:53 AM, 21/OCTOBER/2021 01:34:26 PM, 24/NOVEMBER/2021 10:32:0

REACTIONS (1)
  - Treatment noncompliance [Unknown]
